FAERS Safety Report 16043954 (Version 1)
Quarter: 2019Q1

REPORT INFORMATION
  Report Type: Spontaneous
  Country: US (occurrence: US)
  Receive Date: 20190306
  Receipt Date: 20190306
  Transmission Date: 20190418
  Serious: No
  Sender: FDA-Public Use
  Company Number: US-SA-2019SA061218

PATIENT

DRUGS (5)
  1. METHOTREXATE. [Suspect]
     Active Substance: METHOTREXATE
     Dosage: UNK
     Dates: start: 201403
  2. ENBREL [Suspect]
     Active Substance: ETANERCEPT
     Dosage: UNK
     Dates: start: 201504, end: 201604
  3. ARAVA [Suspect]
     Active Substance: LEFLUNOMIDE
     Dosage: UNK
     Dates: start: 201410, end: 201411
  4. SIMPONI ARIA [Suspect]
     Active Substance: GOLIMUMAB
     Dosage: UNK
     Dates: start: 201501, end: 201505
  5. ENBREL [Suspect]
     Active Substance: ETANERCEPT
     Dosage: UNK
     Dates: start: 201704, end: 201712

REACTIONS (4)
  - Abdominal discomfort [Unknown]
  - Drug intolerance [Unknown]
  - Drug ineffective [Unknown]
  - Unevaluable event [Unknown]
